FAERS Safety Report 24704117 (Version 3)
Quarter: 2025Q1

REPORT INFORMATION
  Report Type: Spontaneous
  Country: DE (occurrence: DE)
  Receive Date: 20241206
  Receipt Date: 20250307
  Transmission Date: 20250408
  Serious: Yes (Hospitalization, Other)
  Sender: AUROBINDO
  Company Number: DE-UCBSA-2024059549

PATIENT
  Age: 35 Year
  Sex: Male

DRUGS (11)
  1. LEVETIRACETAM [Suspect]
     Active Substance: LEVETIRACETAM
     Indication: Seizure
     Dosage: 500 MILLIGRAM, ONCE A DAY (250 MILLIGRAM, 2X/DAY (BID)
     Route: 065
     Dates: start: 202403
  2. FENFLURAMINE [Interacting]
     Active Substance: FENFLURAMINE
     Indication: Seizure
     Dosage: 12 MILLILITER, ONCE A DAY (6 MILLILITER, 2X/DAY (BID)
     Route: 065
     Dates: start: 202403, end: 2024
  3. FENFLURAMINE [Interacting]
     Active Substance: FENFLURAMINE
     Route: 065
     Dates: start: 202404
  4. FENFLURAMINE [Interacting]
     Active Substance: FENFLURAMINE
     Dosage: 2 MILLILITER, ONCE A DAY (1 MILLILITER, 2X/DAY (BID)
     Route: 065
  5. FENFLURAMINE [Interacting]
     Active Substance: FENFLURAMINE
     Route: 065
     Dates: start: 202407
  6. FENFLURAMINE [Interacting]
     Active Substance: FENFLURAMINE
     Route: 065
     Dates: start: 2024
  7. POTASSIUM BROMIDE [Suspect]
     Active Substance: POTASSIUM BROMIDE
     Indication: Seizure
     Route: 065
  8. POTASSIUM BROMIDE [Suspect]
     Active Substance: POTASSIUM BROMIDE
     Route: 065
     Dates: start: 202403
  9. POTASSIUM BROMIDE [Suspect]
     Active Substance: POTASSIUM BROMIDE
     Route: 065
     Dates: start: 202404
  10. POTASSIUM BROMIDE [Suspect]
     Active Substance: POTASSIUM BROMIDE
     Route: 065
     Dates: start: 2024
  11. VALPROIC ACID [Suspect]
     Active Substance: VALPROIC ACID
     Indication: Seizure
     Dosage: 1000 MILLIGRAM, ONCE A DAY (500 MILLIGRAM, 2X/DAY (BID)
     Route: 065
     Dates: start: 202403

REACTIONS (13)
  - Generalised tonic-clonic seizure [Unknown]
  - Encephalopathy [Unknown]
  - Drug level increased [Unknown]
  - Ataxia [Unknown]
  - Psychomotor skills impaired [Unknown]
  - Acne [Unknown]
  - Asthenia [Unknown]
  - Anxiety [Unknown]
  - Skin disorder [Unknown]
  - Somnolence [Recovering/Resolving]
  - Wrong technique in product usage process [Unknown]
  - Toxicity to various agents [Unknown]
  - Drug interaction [Unknown]

NARRATIVE: CASE EVENT DATE: 20240101
